FAERS Safety Report 15226994 (Version 1)
Quarter: 2018Q3

REPORT INFORMATION
  Report Type: Spontaneous
  Country: US (occurrence: US)
  Receive Date: 20180706
  Receipt Date: 20180706
  Transmission Date: 20181010
  Serious: Yes (Hospitalization, Disabling, Other)
  Sender: FDA-Public Use
  Company Number: None

PATIENT
  Age: 45 Year
  Sex: Male
  Weight: 81 kg

DRUGS (2)
  1. AMIFOSTINE. [Suspect]
     Active Substance: AMIFOSTINE
     Indication: RADIOTHERAPY
     Dosage: QUANTITY:2 INJECTION(S); INJECTION JUST UNDER SKIN?
     Route: 058
     Dates: start: 20021222, end: 20030210
  2. DILAUDID [Concomitant]
     Active Substance: HYDROMORPHONE HYDROCHLORIDE

REACTIONS (4)
  - Injection site pain [None]
  - Injection site pruritus [None]
  - Pain [None]
  - Gait inability [None]

NARRATIVE: CASE EVENT DATE: 20030601
